FAERS Safety Report 14254829 (Version 1)
Quarter: 2017Q4

REPORT INFORMATION
  Report Type: Spontaneous
  Country: US (occurrence: None)
  Receive Date: 20171205
  Receipt Date: 20171205
  Transmission Date: 20180321
  Serious: Yes (Other)
  Sender: FDA-Public Use
  Company Number: None

PATIENT
  Sex: Female
  Weight: 57 kg

DRUGS (2)
  1. LEVETIRACETAM, 1000 MG [Suspect]
     Active Substance: LEVETIRACETAM
     Indication: PRODUCT SUBSTITUTION
     Route: 048
     Dates: start: 20100301, end: 20100501
  2. LAMOTRIGINE. [Concomitant]
     Active Substance: LAMOTRIGINE

REACTIONS (1)
  - Product substitution issue [None]
